FAERS Safety Report 12842316 (Version 4)
Quarter: 2016Q4

REPORT INFORMATION
  Report Type: Spontaneous
  Country: JP (occurrence: JP)
  Receive Date: 20161013
  Receipt Date: 20161215
  Transmission Date: 20170207
  Serious: Yes (Hospitalization, Other)
  Sender: FDA-Public Use
  Company Number: JP-009507513-1610JPN003205

PATIENT
  Age: 53 Year
  Sex: Female
  Weight: 37 kg

DRUGS (14)
  1. PLATELETS [Concomitant]
     Active Substance: HUMAN PLATELET, ALLOGENIC
     Dosage: UNK
     Route: 051
     Dates: start: 20151002, end: 20151002
  2. FENTANYL. [Concomitant]
     Active Substance: FENTANYL
     Indication: SEDATION
     Dosage: DAILY DOSAGE UNKNOWN
     Route: 042
     Dates: start: 20150910
  3. MEROPENEM. [Concomitant]
     Active Substance: MEROPENEM
     Route: 051
     Dates: start: 20150924, end: 20151216
  4. ONOACT [Concomitant]
     Active Substance: LANDIOLOL HYDROCHLORIDE
     Route: 051
     Dates: start: 20150924, end: 20150924
  5. ESLAX INTRAVENOUS 50MG/5.0ML [Suspect]
     Active Substance: ROCURONIUM BROMIDE
     Dosage: 50 MG, QD
     Route: 042
     Dates: start: 20150926, end: 20150926
  6. ESLAX INTRAVENOUS 50MG/5.0ML [Suspect]
     Active Substance: ROCURONIUM BROMIDE
     Dosage: 50 MG, QD
     Route: 042
     Dates: start: 20151002, end: 20151002
  7. PLATELETS [Concomitant]
     Active Substance: HUMAN PLATELET, ALLOGENIC
     Route: 051
     Dates: start: 20150924, end: 20150924
  8. ESLAX INTRAVENOUS 50MG/5.0ML [Suspect]
     Active Substance: ROCURONIUM BROMIDE
     Indication: NEUROMUSCULAR BLOCKING THERAPY
     Dosage: 50 MG, QD
     Route: 042
     Dates: start: 20150910, end: 20150910
  9. PROPOFOL. [Concomitant]
     Active Substance: PROPOFOL
     Route: 051
     Dates: end: 20151007
  10. PLATELETS [Concomitant]
     Active Substance: HUMAN PLATELET, ALLOGENIC
     Dosage: UNK
     Route: 051
     Dates: start: 20150929, end: 20150929
  11. MIDAZOLAM [Concomitant]
     Active Substance: MIDAZOLAM\MIDAZOLAM HYDROCHLORIDE
     Indication: SEDATION
     Dosage: DAILY DOSAGE UNKNOWN
     Route: 042
     Dates: start: 20150910
  12. AMLODIPINE [Concomitant]
     Active Substance: AMLODIPINE BESYLATE
     Route: 048
     Dates: end: 20151104
  13. LANTUS [Concomitant]
     Active Substance: INSULIN GLARGINE
     Route: 051
  14. PLATELETS [Concomitant]
     Active Substance: HUMAN PLATELET, ALLOGENIC
     Dosage: UNK
     Route: 051
     Dates: start: 20151005, end: 20151006

REACTIONS (4)
  - Haemorrhoidal haemorrhage [Unknown]
  - Polyneuropathy [Recovering/Resolving]
  - Supraventricular tachycardia [Unknown]
  - Varicella [Unknown]

NARRATIVE: CASE EVENT DATE: 20150924
